FAERS Safety Report 8949711 (Version 2)
Quarter: 2012Q4

REPORT INFORMATION
  Report Type: Report from Study
  Country: DE (occurrence: DE)
  Receive Date: 20121206
  Receipt Date: 20121226
  Transmission Date: 20130627
  Serious: No
  Sender: FDA-Public Use
  Company Number: DE-ROCHE-1164621

PATIENT
  Sex: Female

DRUGS (3)
  1. RANIBIZUMAB [Suspect]
     Indication: AGE-RELATED MACULAR DEGENERATION
     Route: 050
     Dates: start: 20120806
  2. RANIBIZUMAB [Suspect]
     Route: 050
     Dates: start: 20120903
  3. RANIBIZUMAB [Suspect]
     Route: 050
     Dates: start: 20121001

REACTIONS (3)
  - Macular degeneration [Not Recovered/Not Resolved]
  - Retinal detachment [Not Recovered/Not Resolved]
  - Drug ineffective [Unknown]
